FAERS Safety Report 11566536 (Version 3)
Quarter: 2015Q4

REPORT INFORMATION
  Report Type: Spontaneous
  Country: JP (occurrence: JP)
  Receive Date: 20150929
  Receipt Date: 20151219
  Transmission Date: 20160304
  Serious: Yes (Life-Threatening, Hospitalization, Other)
  Sender: FDA-Public Use
  Company Number: JP-AMGEN-JPNSP2015100374

PATIENT
  Age: 59 Year
  Sex: Male
  Weight: 70.7 kg

DRUGS (14)
  1. VECTIBIX [Suspect]
     Active Substance: PANITUMUMAB
     Indication: COLON CANCER
     Dosage: 400 MG, Q2WEEKS
     Route: 041
     Dates: start: 20150522
  2. CALCIUM LEVOFOLINATE [Concomitant]
     Active Substance: LEVOLEUCOVORIN CALCIUM
     Indication: COLON CANCER
     Dosage: 375 MG, Q2WEEKS
     Route: 041
     Dates: start: 20150522, end: 20150522
  3. CALCIUM LEVOFOLINATE [Concomitant]
     Active Substance: LEVOLEUCOVORIN CALCIUM
     Indication: COLON CANCER
     Dosage: 375 MG, Q2WEEKS
     Route: 041
     Dates: start: 20150710
  4. VECTIBIX [Suspect]
     Active Substance: PANITUMUMAB
     Dosage: 400 MG, Q2WEEKS
     Route: 041
     Dates: start: 20150710, end: 20150904
  5. CALCIUM LEVOFOLINATE [Concomitant]
     Active Substance: LEVOLEUCOVORIN CALCIUM
     Indication: METASTASES TO LIVER
     Dosage: 375 MG, Q2WEEKS
     Route: 041
     Dates: start: 20150612, end: 20150612
  6. COLCHICINE. [Concomitant]
     Active Substance: COLCHICINE
     Indication: GOUT
     Dosage: 0.5 MG, TID
     Route: 048
  7. VECTIBIX [Suspect]
     Active Substance: PANITUMUMAB
     Indication: METASTASES TO LIVER
     Dosage: 400 MG, Q2WEEKS
     Route: 041
     Dates: start: 20150612
  8. IRINOTECAN HYDROCHLORIDE. [Concomitant]
     Active Substance: IRINOTECAN HYDROCHLORIDE
     Indication: METASTASES TO LIVER
     Dosage: 240 MG, Q2WEEKS
     Route: 041
     Dates: start: 20150612, end: 20150612
  9. 5-FU                               /00098801/ [Concomitant]
     Active Substance: FLUOROURACIL
     Indication: COLON CANCER
     Dosage: 4100 MG, Q2WEEKS
     Route: 041
     Dates: start: 20150710
  10. IRINOTECAN HYDROCHLORIDE. [Concomitant]
     Active Substance: IRINOTECAN HYDROCHLORIDE
     Indication: COLON CANCER
     Dosage: 240 MG, Q2WEEKS
     Route: 041
     Dates: start: 20150522, end: 20150522
  11. 5-FU                               /00098801/ [Concomitant]
     Active Substance: FLUOROURACIL
     Indication: COLON CANCER
     Dosage: 4100 MG, Q2WEEKS
     Route: 041
     Dates: start: 20150522, end: 20150522
  12. TOPILORIC [Concomitant]
     Active Substance: TOPIROXOSTAT
     Indication: GOUT
     Dosage: 40 MG, QD
     Route: 048
  13. IRINOTECAN HYDROCHLORIDE. [Concomitant]
     Active Substance: IRINOTECAN HYDROCHLORIDE
     Indication: COLON CANCER
     Dosage: 240 MG, Q2WEEKS
     Route: 041
     Dates: start: 20150710
  14. 5-FU                               /00098801/ [Concomitant]
     Active Substance: FLUOROURACIL
     Indication: METASTASES TO LIVER
     Dosage: 4100 MG, Q2WEEKS
     Route: 041
     Dates: start: 20150612, end: 20150612

REACTIONS (4)
  - Deep vein thrombosis [Recovering/Resolving]
  - Pulmonary artery thrombosis [Recovering/Resolving]
  - Bone marrow failure [Unknown]
  - Dermatitis acneiform [Unknown]

NARRATIVE: CASE EVENT DATE: 20150911
